FAERS Safety Report 5627369-4 (Version None)
Quarter: 2008Q1

REPORT INFORMATION
  Report Type: 
  Country: None (occurrence: None)
  Receive Date: 20080215
  Receipt Date: 20080212
  Transmission Date: 20080703
  Serious: Yes (Other)
  Sender: FDA-Public Use
  Company Number: US-WYE-H02606308

PATIENT
  Sex: Male

DRUGS (1)
  1. ADVIL COLD AND SINUS [Suspect]
     Indication: NASOPHARYNGITIS
     Dosage: 1 CAPLET EVERY 4-6 HOURS
     Route: 048
     Dates: start: 20080201

REACTIONS (2)
  - CONDITION AGGRAVATED [None]
  - HYPERTENSION [None]
